FAERS Safety Report 10359940 (Version 1)
Quarter: 2014Q3

REPORT INFORMATION
  Report Type: Spontaneous
  Country: JP (occurrence: None)
  Receive Date: 20140730
  Receipt Date: 20140730
  Transmission Date: 20150326
  Serious: Yes (Other)
  Sender: FDA-Public Use
  Company Number: 2008JP001441

PATIENT
  Age: 4 Year
  Sex: Female

DRUGS (5)
  1. CYCLOPHOSPHAMIDE (CYCLOPHOSPHAMIDE) [Concomitant]
     Active Substance: CYCLOPHOSPHAMIDE
  2. PROGRAF [Suspect]
     Active Substance: TACROLIMUS\TACROLIMUS ANHYDROUS
     Indication: PROPHYLAXIS AGAINST GRAFT VERSUS HOST DISEASE
  3. ATG /00575401/ (ANTITHYMOCYTE IMMUNOGLOBULIN) [Concomitant]
  4. FLUDARABINE [Concomitant]
     Active Substance: FLUDARABINE PHOSPHATE
  5. METHOTREXATE [Suspect]
     Active Substance: METHOTREXATE
     Indication: PROPHYLAXIS AGAINST GRAFT VERSUS HOST DISEASE

REACTIONS (3)
  - Acute graft versus host disease in intestine [None]
  - Drug ineffective [None]
  - Cytomegalovirus viraemia [None]
